FAERS Safety Report 6655671-6 (Version None)
Quarter: 2010Q1

REPORT INFORMATION
  Report Type: 
  Country: None (occurrence: None)
  Receive Date: 20100329
  Receipt Date: 20100318
  Transmission Date: 20100710
  Serious: Yes (Hospitalization)
  Sender: FDA-Public Use
  Company Number: CA-JNJFOC-20100306319

PATIENT
  Sex: Male
  Weight: 49.44 kg

DRUGS (1)
  1. REMICADE [Suspect]
     Indication: COLITIS ULCERATIVE
     Route: 042

REACTIONS (10)
  - ABNORMAL SENSATION IN EYE [None]
  - DRY THROAT [None]
  - GAIT DISTURBANCE [None]
  - HEADACHE [None]
  - HYPERHIDROSIS [None]
  - INFUSION RELATED REACTION [None]
  - OROPHARYNGEAL DISCOMFORT [None]
  - PAIN [None]
  - STOMATITIS [None]
  - VERTIGO [None]
